FAERS Safety Report 7212798-8 (Version None)
Quarter: 2011Q1

REPORT INFORMATION
  Report Type: 
  Country: None (occurrence: None)
  Receive Date: 20110106
  Receipt Date: 20101230
  Transmission Date: 20110831
  Serious: Yes (Other)
  Sender: FDA-Public Use
  Company Number: CA-ROCHE-751210

PATIENT
  Sex: Female

DRUGS (2)
  1. XENICAL [Suspect]
     Indication: WEIGHT CONTROL
     Dosage: THERAPY SPORADICALLY.
     Route: 048
     Dates: start: 20000101, end: 20070101
  2. XENICAL [Suspect]
     Route: 048
     Dates: start: 20070101

REACTIONS (1)
  - GASTROINTESTINAL DISORDER [None]
